FAERS Safety Report 22539754 (Version 1)
Quarter: 2023Q2

REPORT INFORMATION
  Report Type: Report from Study
  Country: GB (occurrence: GB)
  Receive Date: 20230609
  Receipt Date: 20230609
  Transmission Date: 20230722
  Serious: Yes (Hospitalization, Other)
  Sender: FDA-Public Use
  Company Number: GB-TAKEDA-2023TUS055851

PATIENT
  Age: 50 Year
  Sex: Female

DRUGS (7)
  1. ICATIBANT [Suspect]
     Active Substance: ICATIBANT ACETATE
     Indication: Hereditary angioedema
     Dosage: 30 MILLIGRAM
     Route: 050
  2. ICATIBANT [Suspect]
     Active Substance: ICATIBANT ACETATE
     Indication: Hereditary angioedema
     Dosage: 30 MILLIGRAM
     Route: 050
  3. SIMVASTATIN [Concomitant]
     Active Substance: SIMVASTATIN
     Indication: Blood cholesterol increased
     Dosage: 20 MILLIGRAM, QD
     Route: 048
  4. LEVOTHYROXINE SODIUM [Concomitant]
     Active Substance: LEVOTHYROXINE SODIUM
     Indication: Hypothyroidism
     Dosage: 50 MICROGRAM, QD
     Route: 048
  5. CABERGOLINE [Concomitant]
     Active Substance: CABERGOLINE
     Indication: Hypothalamo-pituitary disorder
     Dosage: 0.25 MILLIGRAM, 1/WEEK
     Route: 048
  6. FEXOFENADINE [Concomitant]
     Active Substance: FEXOFENADINE HYDROCHLORIDE
     Dosage: 120 MILLIGRAM, BID
     Route: 048
     Dates: start: 201911, end: 20210601
  7. DESOGESTREL [Concomitant]
     Active Substance: DESOGESTREL
     Indication: Swelling
     Dosage: 75 MILLIGRAM, QD
     Route: 048
     Dates: start: 20210602

REACTIONS (1)
  - Angioedema [Recovered/Resolved]

NARRATIVE: CASE EVENT DATE: 20210624
